FAERS Safety Report 23535790 (Version 3)
Quarter: 2024Q2

REPORT INFORMATION
  Report Type: Spontaneous
  Country: US (occurrence: US)
  Receive Date: 20240218
  Receipt Date: 20240411
  Transmission Date: 20240716
  Serious: No
  Sender: FDA-Public Use
  Company Number: US-JNJFOC-20240168872

PATIENT
  Age: 72 Year
  Sex: Female

DRUGS (1)
  1. PEPCID COMPLETE [Suspect]
     Active Substance: CALCIUM CARBONATE\FAMOTIDINE\MAGNESIUM HYDROXIDE
     Indication: Dyspepsia
     Dosage: ONCE EVERY TWO WEEKS. IF NEEDED.
     Route: 048

REACTIONS (3)
  - Oral discomfort [Unknown]
  - Feeling cold [Unknown]
  - Product complaint [Unknown]
